FAERS Safety Report 10162566 (Version 1)
Quarter: 2014Q2

REPORT INFORMATION
  Report Type: Spontaneous
  Country: GB (occurrence: GB)
  Receive Date: 20140509
  Receipt Date: 20140509
  Transmission Date: 20141212
  Serious: Yes (Other)
  Sender: FDA-Public Use
  Company Number: GB-JNJFOC-20140503415

PATIENT
  Age: 80 Year
  Sex: Male
  Weight: 102 kg

DRUGS (8)
  1. XARELTO [Suspect]
     Indication: EMBOLISM VENOUS
     Route: 048
     Dates: start: 20130919, end: 20130930
  2. XARELTO [Suspect]
     Indication: DEEP VEIN THROMBOSIS
     Route: 048
     Dates: start: 20130919, end: 20130930
  3. ASPIRIN [Concomitant]
     Route: 065
  4. MUCODYNE [Concomitant]
     Route: 065
  5. RAMIPRIL [Concomitant]
     Route: 065
  6. SERETIDE [Concomitant]
     Route: 065
  7. TAMSULOSIN HYDROCHLORIDE [Concomitant]
     Route: 065
  8. FELODIPINE [Concomitant]
     Route: 065

REACTIONS (1)
  - Rash pruritic [Recovered/Resolved]
